FAERS Safety Report 18193487 (Version 1)
Quarter: 2020Q3

REPORT INFORMATION
  Report Type: Spontaneous
  Country: US (occurrence: US)
  Receive Date: 20200825
  Receipt Date: 20200825
  Transmission Date: 20201103
  Serious: Yes (Other)
  Sender: FDA-Public Use
  Company Number: US-SA-2020SA218324

PATIENT

DRUGS (3)
  1. INSULIN ASPART [Suspect]
     Active Substance: INSULIN ASPART
     Dosage: UNK
     Route: 065
  2. GLIMEPIRIDE. [Suspect]
     Active Substance: GLIMEPIRIDE
     Dosage: UNK
     Route: 065
  3. LANTUS [Suspect]
     Active Substance: INSULIN GLARGINE
     Dosage: UNK
     Route: 065

REACTIONS (6)
  - Cholecystectomy [Unknown]
  - Blood glucose decreased [Unknown]
  - Non-alcoholic steatohepatitis [Unknown]
  - Glycosylated haemoglobin increased [Unknown]
  - Diabetic nephropathy [Unknown]
  - Arteriosclerosis [Unknown]
